FAERS Safety Report 25962961 (Version 1)
Quarter: 2025Q4

REPORT INFORMATION
  Report Type: Spontaneous
  Country: US (occurrence: None)
  Receive Date: 20251026
  Receipt Date: 20251026
  Transmission Date: 20260117
  Serious: Yes (Other)
  Sender: FDA-CTU
  Company Number: None

PATIENT
  Age: 52 Year
  Sex: Female
  Weight: 67.5 kg

DRUGS (13)
  1. SORE THROAT LOGENZES SORE THROAT [Suspect]
     Active Substance: BENZOCAINE\MENTHOL
     Indication: Oropharyngeal pain
     Dosage: OTHER QUANTITY : 1 DROP(S);?OTHER FREQUENCY : AS NEEDED;?
     Route: 048
     Dates: start: 20251024, end: 20251025
  2. SORE THROAT LOGENZES SORE THROAT [Suspect]
     Active Substance: BENZOCAINE\MENTHOL
     Indication: Pharyngitis
  3. ESTRADIOL [Concomitant]
     Active Substance: ESTRADIOL
  4. ESTRADIOL TRANSDERMAL SYSTEM [Concomitant]
     Active Substance: ESTRADIOL
  5. Famodtidine [Concomitant]
  6. FLUOXETINE [Concomitant]
     Active Substance: FLUOXETINE HYDROCHLORIDE
  7. LEVOTHYROXINE [Concomitant]
     Active Substance: LEVOTHYROXINE
  8. MINOXIDIL [Concomitant]
     Active Substance: MINOXIDIL
  9. PANTOPRAZOLE [Concomitant]
     Active Substance: PANTOPRAZOLE
  10. PRAVASTATIN [Concomitant]
     Active Substance: PRAVASTATIN
  11. PROGESTERONE [Concomitant]
     Active Substance: PROGESTERONE
  12. TRAZODONE [Concomitant]
     Active Substance: TRAZODONE HYDROCHLORIDE
  13. VITAMINS [Concomitant]
     Active Substance: VITAMINS

REACTIONS (5)
  - Tongue discomfort [None]
  - Chemical burn [None]
  - Glossodynia [None]
  - Swollen tongue [None]
  - Ageusia [None]

NARRATIVE: CASE EVENT DATE: 20251025
